FAERS Safety Report 18420486 (Version 1)
Quarter: 2020Q4

REPORT INFORMATION
  Report Type: Report from Study
  Country: EG (occurrence: EG)
  Receive Date: 20201023
  Receipt Date: 20201023
  Transmission Date: 20210114
  Serious: Yes (Other)
  Sender: FDA-Public Use
  Company Number: NVSC2020EG284743

PATIENT
  Sex: Male
  Weight: 30 kg

DRUGS (2)
  1. MILK POWDER [Concomitant]
     Indication: PRODUCT USED FOR UNKNOWN INDICATION
     Dosage: UNK (5 SCOPE TWICE DAILY) (STARTED WITH OMNITROPE AND THE REPORTER DID NOT KNOW THE END DATE))
     Route: 065
  2. OMNITROPE [Suspect]
     Active Substance: SOMATROPIN
     Indication: GROWTH HORMONE DEFICIENCY
     Dosage: 1.6 MG, QD (AFTER 5 MONTHS FROM THE STARTING DATE)
     Route: 058
     Dates: start: 20181224

REACTIONS (1)
  - Intraocular pressure increased [Recovered/Resolved]
